FAERS Safety Report 9420707 (Version 4)
Quarter: 2013Q3

REPORT INFORMATION
  Report Type: Spontaneous
  Country: IT (occurrence: None)
  Receive Date: 20130723
  Receipt Date: 20130819
  Transmission Date: 20140515
  Serious: Yes (Hospitalization)
  Sender: FDA-Public Use
  Company Number: AUR-APL-2013-06058

PATIENT
  Age: 91 Year
  Sex: Male

DRUGS (3)
  1. RAMIPRIL [Suspect]
     Indication: HYPERTENSION
     Route: 048
     Dates: start: 2012
  2. LASIX (FUROSEMIDE) [Suspect]
     Indication: HYPERTENSION
     Route: 048
     Dates: start: 2012
  3. ALDACTONE (SPIRONOLACTONE) [Suspect]
     Indication: HYPERTENSION
     Route: 048
     Dates: start: 2012

REACTIONS (2)
  - Renal failure acute [None]
  - Drug administration error [None]
